FAERS Safety Report 11776763 (Version 1)
Quarter: 2015Q4

REPORT INFORMATION
  Report Type: Spontaneous
  Country: US (occurrence: None)
  Receive Date: 20151123
  Receipt Date: 20151123
  Transmission Date: 20160304
  Serious: No
  Sender: FDA-Public Use
  Company Number: None

PATIENT
  Age: 62 Year
  Sex: Female

DRUGS (1)
  1. JUBLIA [Suspect]
     Active Substance: EFINACONAZOLE
     Indication: ONYCHOMYCOSIS
     Dosage: ONCE DAILY X 48 WEEKS
     Route: 061
     Dates: start: 20150501, end: 20151120

REACTIONS (1)
  - Fungal paronychia [None]

NARRATIVE: CASE EVENT DATE: 20151120
